FAERS Safety Report 15935866 (Version 1)
Quarter: 2019Q1

REPORT INFORMATION
  Report Type: Spontaneous
  Country: FR (occurrence: FR)
  Receive Date: 20190208
  Receipt Date: 20190208
  Transmission Date: 20190417
  Serious: Yes (Death)
  Sender: FDA-Public Use
  Company Number: FR-OCTA-FIB00319FR

PATIENT
  Age: 80 Year
  Sex: Female
  Weight: 51 kg

DRUGS (1)
  1. FIBRYGA [Suspect]
     Active Substance: FIBRINOGEN HUMAN
     Indication: HAEMORRHAGE
     Dosage: 3 G (13-18H30) ET 2 G (19H) ; IN TOTAL
     Route: 042
     Dates: start: 20190121, end: 20190121

REACTIONS (1)
  - Hepatocellular injury [Fatal]

NARRATIVE: CASE EVENT DATE: 20190122
